FAERS Safety Report 4938805-0 (Version None)
Quarter: 2006Q1

REPORT INFORMATION
  Report Type: 
  Country: None (occurrence: None)
  Receive Date: 20060306
  Receipt Date: 20060217
  Transmission Date: 20060701
  Serious: Yes (Hospitalization, Other)
  Sender: FDA-Public Use
  Company Number: 2006-US-00634

PATIENT
  Age: 42 Year
  Sex: Male

DRUGS (1)
  1. CLOZAPINE [Suspect]
     Indication: SCHIZOPHRENIA
     Dosage: 250 MG, QD, ORAL
     Route: 048
     Dates: start: 20030701

REACTIONS (2)
  - AORTIC ANEURYSM [None]
  - SURGERY [None]
